FAERS Safety Report 7190748-0 (Version None)
Quarter: 2010Q4

REPORT INFORMATION
  Report Type: 
  Country: None (occurrence: None)
  Receive Date: 20101223
  Receipt Date: 20101215
  Transmission Date: 20110411
  Serious: Yes (Other)
  Sender: FDA-Public Use
  Company Number: US-AMGEN-USASP2010009673

PATIENT

DRUGS (9)
  1. EPOGEN [Suspect]
     Indication: RENAL FAILURE CHRONIC
     Dosage: UNK
     Dates: start: 20010622
  2. EPOGEN [Suspect]
     Dosage: 18000 IU, 3 TIMES/WK
  3. EPOGEN [Suspect]
     Dosage: 33000 IU, 3 TIMES/WK
  4. SENSIPAR [Suspect]
     Indication: HYPERPARATHYROIDISM SECONDARY
  5. VENOFER [Concomitant]
  6. AMBIEN [Concomitant]
  7. EMLA [Concomitant]
  8. HECTOROL [Concomitant]
  9. TYLENOL (CAPLET) [Concomitant]

REACTIONS (11)
  - ACTIVATED PARTIAL THROMBOPLASTIN TIME PROLONGED [None]
  - ARTERIOVENOUS FISTULA THROMBOSIS [None]
  - BRONCHITIS [None]
  - DIARRHOEA [None]
  - HYPOPARATHYROIDISM [None]
  - NAUSEA [None]
  - PLATELET COUNT DECREASED [None]
  - SYSTEMIC LUPUS ERYTHEMATOSUS [None]
  - THERAPEUTIC RESPONSE DECREASED [None]
  - VOMITING [None]
  - WHITE BLOOD CELL COUNT DECREASED [None]
